FAERS Safety Report 23462211 (Version 1)
Quarter: 2024Q1

REPORT INFORMATION
  Report Type: Report from Study
  Country: SK (occurrence: SK)
  Receive Date: 20240131
  Receipt Date: 20240131
  Transmission Date: 20240410
  Serious: Yes (Hospitalization)
  Sender: FDA-Public Use
  Company Number: SK-Merck Healthcare KGaA-2024005089

PATIENT
  Age: 26 Year
  Sex: Female
  Weight: 60 kg

DRUGS (2)
  1. MAVENCLAD [Suspect]
     Active Substance: CLADRIBINE
     Indication: Relapsing multiple sclerosis
     Route: 048
     Dates: start: 20210830
  2. MAVENCLAD [Suspect]
     Active Substance: CLADRIBINE
     Dosage: NUMBER OF DOSES PRIOR TO SAE: 30
     Route: 048
     Dates: end: 20221113

REACTIONS (3)
  - Abortion missed [Recovered/Resolved]
  - Maternal exposure before pregnancy [Recovered/Resolved]
  - Pregnancy [Recovered/Resolved]

NARRATIVE: CASE EVENT DATE: 20230927
